FAERS Safety Report 17861443 (Version 1)
Quarter: 2020Q2

REPORT INFORMATION
  Report Type: Report from Study
  Country: US (occurrence: US)
  Receive Date: 20200604
  Receipt Date: 20200604
  Transmission Date: 20200714
  Serious: No
  Sender: FDA-Public Use
  Company Number: NVSC2020US155767

PATIENT
  Sex: Male

DRUGS (1)
  1. COSENTYX [Suspect]
     Active Substance: SECUKINUMAB
     Indication: PSORIASIS
     Dosage: 300 MG, QW, FOR 5 WEEKS, THEN EVRY 4 WEEKS
     Route: 058

REACTIONS (3)
  - Product administration error [Unknown]
  - Skin exfoliation [Unknown]
  - Injection site bruising [Unknown]
